FAERS Safety Report 7407975-7 (Version None)
Quarter: 2011Q2

REPORT INFORMATION
  Report Type: 
  Country: None (occurrence: None)
  Receive Date: 20110412
  Receipt Date: 20110407
  Transmission Date: 20111010
  Serious: Yes (Disabling, Other)
  Sender: FDA-Public Use
  Company Number: US-PFIZER INC-2011077243

PATIENT
  Sex: Male
  Weight: 98.866 kg

DRUGS (8)
  1. QUINIDINE [Concomitant]
     Dosage: 5 MG, 1X/DAY
     Route: 048
  2. METOPROLOL [Concomitant]
     Dosage: 25 MG, 2X/DAY
     Route: 048
  3. MELOXICAM [Concomitant]
     Dosage: 50 MG, 1X/DAY
     Route: 048
  4. ENALAPRIL [Concomitant]
     Dosage: 10 MG, 2X/DAY
     Route: 048
  5. DIGOXIN [Concomitant]
     Dosage: 250 MG, 1X/DAY
     Route: 048
  6. VIAGRA [Suspect]
     Indication: SEXUAL DYSFUNCTION
     Dosage: UNK
     Route: 048
     Dates: start: 20110201, end: 20110201
  7. ACETYLSALICYLIC ACID [Concomitant]
     Dosage: 81 MG, 1X/DAY
     Route: 048
  8. LORTAB [Concomitant]
     Dosage: 7.5/500
     Route: 048

REACTIONS (1)
  - DIPLOPIA [None]
